FAERS Safety Report 25637183 (Version 1)
Quarter: 2025Q3

REPORT INFORMATION
  Report Type: Spontaneous
  Country: EU (occurrence: EU)
  Receive Date: 20250804
  Receipt Date: 20250804
  Transmission Date: 20251020
  Serious: Yes (Hospitalization, Other)
  Sender: AUROBINDO
  Company Number: EU-AFSSAPS-CN20180494

PATIENT
  Age: 45 Year
  Sex: Male

DRUGS (12)
  1. OXYCODONE [Suspect]
     Active Substance: OXYCODONE
     Indication: Product used for unknown indication
     Route: 048
     Dates: start: 2016
  2. VALIUM [Suspect]
     Active Substance: DIAZEPAM
     Indication: Product used for unknown indication
     Route: 048
  3. SKENAN [Suspect]
     Active Substance: MORPHINE SULFATE
     Indication: Product used for unknown indication
     Route: 048
     Dates: start: 1987
  4. CANNABIS SATIVA SUBSP. INDICA TOP [Suspect]
     Active Substance: CANNABIS SATIVA SUBSP. INDICA TOP
     Indication: Product used for unknown indication
     Dates: start: 1985
  5. HEROIN [Suspect]
     Active Substance: DIAMORPHINE
     Indication: Product used for unknown indication
     Route: 042
     Dates: start: 1987, end: 2016
  6. COCAINE [Suspect]
     Active Substance: COCAINE
     Indication: Product used for unknown indication
     Route: 065
     Dates: start: 1991, end: 2003
  7. KETAMINE [Suspect]
     Active Substance: KETAMINE
     Indication: Product used for unknown indication
     Route: 065
     Dates: start: 1991, end: 2003
  8. LYSERGIDE [Suspect]
     Active Substance: LYSERGIDE
     Indication: Product used for unknown indication
     Route: 065
     Dates: start: 1991, end: 2003
  9. MIDOMAFETAMINE [Suspect]
     Active Substance: MIDOMAFETAMINE
     Indication: Product used for unknown indication
     Route: 065
     Dates: start: 1991, end: 2003
  10. AMPHETAMINE [Suspect]
     Active Substance: AMPHETAMINE
     Indication: Product used for unknown indication
     Route: 065
     Dates: start: 1991, end: 2003
  11. ALCOHOL [Suspect]
     Active Substance: ALCOHOL
     Indication: Product used for unknown indication
     Route: 048
     Dates: start: 1981
  12. NICOTINE\TOBACCO LEAF [Suspect]
     Active Substance: NICOTINE\TOBACCO LEAF
     Indication: Product used for unknown indication
     Dates: start: 1984

REACTIONS (7)
  - Seizure [Not Recovered/Not Resolved]
  - Withdrawal syndrome [Recovered/Resolved]
  - Drug dependence [Recovering/Resolving]
  - Intentional product misuse [Recovering/Resolving]
  - Alcohol abuse [Recovering/Resolving]
  - Drug abuser [Recovering/Resolving]
  - Drug abuse [Recovering/Resolving]

NARRATIVE: CASE EVENT DATE: 19810101
